FAERS Safety Report 9493406 (Version 2)
Quarter: 2013Q3

REPORT INFORMATION
  Report Type: Spontaneous
  Country: JP (occurrence: JP)
  Receive Date: 20130902
  Receipt Date: 20130917
  Transmission Date: 20140515
  Serious: Yes (Other)
  Sender: FDA-Public Use
  Company Number: PHHY2013JP095248

PATIENT
  Age: 36 Year
  Sex: Female

DRUGS (1)
  1. CLOZARIL [Suspect]
     Indication: SCHIZOPHRENIA
     Route: 048
     Dates: start: 20110223

REACTIONS (4)
  - VIIth nerve paralysis [Recovered/Resolved]
  - Drooling [Unknown]
  - Ophthalmoplegia [Unknown]
  - Viral infection [Unknown]
